FAERS Safety Report 7450687-4 (Version None)
Quarter: 2011Q2

REPORT INFORMATION
  Report Type: 
  Country: None (occurrence: None)
  Receive Date: 20110429
  Receipt Date: 20110429
  Transmission Date: 20111010
  Serious: Yes (Disabling)
  Sender: FDA-Public Use
  Company Number: None

PATIENT
  Sex: Female

DRUGS (1)
  1. LOVASTATIN [Suspect]
     Indication: BLOOD CHOLESTEROL INCREASED
     Dosage: 20MG 2 TABLETS @ BEDTIME
     Dates: start: 20100301, end: 20110301

REACTIONS (4)
  - BURNING SENSATION [None]
  - TREMOR [None]
  - DISORIENTATION [None]
  - BACK PAIN [None]
